FAERS Safety Report 20844816 (Version 3)
Quarter: 2023Q2

REPORT INFORMATION
  Report Type: Report from Study
  Country: SE (occurrence: SE)
  Receive Date: 20220518
  Receipt Date: 20230508
  Transmission Date: 20230722
  Serious: Yes (Hospitalization, Other)
  Sender: FDA-Public Use
  Company Number: SE-ABBVIE-22K-150-4398555-00

PATIENT
  Age: 71 Year
  Sex: Male
  Weight: 83 kg

DRUGS (6)
  1. CARBIDOPA\LEVODOPA [Suspect]
     Active Substance: CARBIDOPA\LEVODOPA
     Indication: Parkinson^s disease
     Route: 050
     Dates: start: 20170327
  2. CARBIDOPA\LEVODOPA [Suspect]
     Active Substance: CARBIDOPA\LEVODOPA
     Dosage: THERAPY DURATION: REMAINS AT 24H?CONTINUOUS DOSE DAY DECREASED FROM 7.5 ML/H TO 6.5 ML/H
     Route: 050
     Dates: start: 20221117
  3. CARBIDOPA\LEVODOPA [Suspect]
     Active Substance: CARBIDOPA\LEVODOPA
     Dosage: CURRENT DOSES: MORNING DOSE 3ML, CD DAY 7.5 ML/H, CD NIGHT 6.5 ML/H
     Route: 050
     Dates: start: 20220516
  4. CARBIDOPA\LEVODOPA [Suspect]
     Active Substance: CARBIDOPA\LEVODOPA
     Dosage: CURRENT DOSE: EXTRA DOSE 3.0 ML
     Route: 050
     Dates: start: 20220516
  5. CARBIDOPA\LEVODOPA [Suspect]
     Active Substance: CARBIDOPA\LEVODOPA
     Dosage: THERAPY DURATION: REMAINS AT 24H
     Route: 050
  6. CARBIDOPA\LEVODOPA [Suspect]
     Active Substance: CARBIDOPA\LEVODOPA
     Dosage: CONTINUOUS DOSE NIGHT DECREASED FROM 6.5 ML/H TO 5.5 ML/H. EXTRA DOSE DECREASED FROM 3 ML TO 2 ML
     Route: 050
     Dates: start: 20221117

REACTIONS (7)
  - Urinary tract infection [Recovered/Resolved]
  - Humerus fracture [Recovering/Resolving]
  - Device dislocation [Recovered/Resolved]
  - Hypotension [Not Recovered/Not Resolved]
  - Syncope [Not Recovered/Not Resolved]
  - Weight decreased [Recovering/Resolving]
  - Fall [Unknown]

NARRATIVE: CASE EVENT DATE: 20220301
